FAERS Safety Report 6821172-5 (Version None)
Quarter: 2010Q3

REPORT INFORMATION
  Report Type: 
  Country: None (occurrence: None)
  Receive Date: 20100707
  Receipt Date: 20080305
  Transmission Date: 20110219
  Serious: No
  Sender: FDA-Public Use
  Company Number: US-PFIZER INC-2008021141

PATIENT
  Sex: Male
  Weight: 73.6 kg

DRUGS (4)
  1. ZOLOFT [Suspect]
     Indication: STRESS
     Route: 048
     Dates: start: 19940101
  2. OXYCONTIN [Concomitant]
     Indication: BONE PAIN
  3. ALLOPURINOL [Concomitant]
     Indication: NEPHROLITHIASIS
  4. VYTORIN [Concomitant]
     Dosage: 10/20 MG

REACTIONS (10)
  - CHEST DISCOMFORT [None]
  - DIZZINESS [None]
  - DYSPNOEA [None]
  - FATIGUE [None]
  - FEELING ABNORMAL [None]
  - FORMICATION [None]
  - HEADACHE [None]
  - MUSCLE TWITCHING [None]
  - THROAT TIGHTNESS [None]
  - VERTIGO [None]
